FAERS Safety Report 11287661 (Version 2)
Quarter: 2015Q4

REPORT INFORMATION
  Report Type: Spontaneous
  Country: US (occurrence: US)
  Receive Date: 20150721
  Receipt Date: 20151201
  Transmission Date: 20160304
  Serious: Yes (Other)
  Sender: FDA-Public Use
  Company Number: US-PFIZER INC-2015240338

PATIENT
  Age: 67 Year
  Sex: Female

DRUGS (18)
  1. FOLIC ACID. [Concomitant]
     Active Substance: FOLIC ACID
     Dosage: 1 MG, DAILY
     Route: 048
  2. FUROSEMIDE. [Concomitant]
     Active Substance: FUROSEMIDE
     Indication: FLUID RETENTION
     Dosage: 40 MG, 2X/DAY
     Route: 048
  3. IBANDRONATE [Concomitant]
     Active Substance: IBANDRONATE SODIUM
     Indication: OSTEOPOROSIS
     Dosage: 150 MG, 1X/DAY
     Route: 048
  4. LACTULOSE. [Concomitant]
     Active Substance: LACTULOSE
     Indication: CONSTIPATION
     Dosage: 15 ML (10 GRAM/15 ML) EVERY DAY AS NEEDED
     Route: 048
  5. PRAVASTATIN [Concomitant]
     Active Substance: PRAVASTATIN\PRAVASTATIN SODIUM
     Indication: CARDIAC DISORDER
     Dosage: 40 MG, DAILY
     Route: 048
  6. DILTIAZEM HYDROCHLORIDE EXTENDED RELEASE [Concomitant]
     Active Substance: DILTIAZEM HYDROCHLORIDE
     Indication: HYPERTENSION
     Dosage: 240 MG, 2X/DAY
  7. ISOSORBIDE MONONITRATE EXTENDED RELEASE [Concomitant]
     Active Substance: ISOSORBIDE MONONITRATE
     Dosage: 60 MG, 1X/DAY
     Route: 048
  8. ESTRADIOL. [Concomitant]
     Active Substance: ESTRADIOL
     Indication: HORMONE REPLACEMENT THERAPY
     Dosage: 0.5 MG, DAILY
     Route: 048
  9. HYDROXYCHLOROQUINE [Concomitant]
     Active Substance: HYDROXYCHLOROQUINE
     Indication: CARDIAC DISORDER
     Dosage: 200 MG, DAILY
     Route: 048
  10. VALACYCLOVIR [Concomitant]
     Active Substance: VALACYCLOVIR HYDROCHLORIDE
     Indication: HERPES VIRUS INFECTION
     Dosage: 500 MG, DAILY
     Route: 048
  11. VITAMIN D3 [Concomitant]
     Active Substance: CHOLECALCIFEROL
     Dosage: 2000 IU, DAILY
     Route: 048
  12. XELJANZ [Suspect]
     Active Substance: TOFACITINIB CITRATE
     Indication: RHEUMATOID ARTHRITIS
     Dosage: 5 MG, 2X/DAY
     Route: 048
  13. ROPINIROLE. [Concomitant]
     Active Substance: ROPINIROLE
     Indication: RESTLESS LEGS SYNDROME
     Dosage: 0.5 MG, 4X/DAY
  14. ASPIRIN. [Concomitant]
     Active Substance: ASPIRIN
     Indication: CARDIAC DISORDER
     Dosage: 81 MG, DAILY
     Route: 048
  15. DOXEPIN [Concomitant]
     Active Substance: DOXEPIN
     Indication: INSOMNIA
     Dosage: 25 MG CAPSULE, 1 TO 2 CAP PRN QHS
  16. NITROSTAT [Concomitant]
     Active Substance: NITROGLYCERIN
     Indication: CARDIAC DISORDER
     Dosage: 0.4 MG, AS NEEDED
     Route: 060
  17. METOPROLOL TARTRATE. [Concomitant]
     Active Substance: METOPROLOL TARTRATE
     Indication: HYPERTENSION
     Dosage: 50 MG, 2X/DAY
     Route: 048
  18. OXYCODONE [Concomitant]
     Active Substance: OXYCODONE
     Indication: PAIN
     Dosage: 10 MG EVERY 4 HOURS
     Route: 048

REACTIONS (12)
  - Osteoarthritis [Unknown]
  - Fibromyalgia [Unknown]
  - Neuropathy peripheral [Unknown]
  - Cardiac failure congestive [Unknown]
  - Erythema infectiosum [Unknown]
  - Fibrocystic breast disease [Unknown]
  - Parvovirus infection [Unknown]
  - Angina pectoris [Unknown]
  - Raynaud^s phenomenon [Unknown]
  - Infrequent bowel movements [Unknown]
  - Mitral valve prolapse [Unknown]
  - Malaise [Unknown]
